FAERS Safety Report 20044918 (Version 4)
Quarter: 2022Q1

REPORT INFORMATION
  Report Type: Spontaneous
  Country: PT (occurrence: PT)
  Receive Date: 20211108
  Receipt Date: 20220317
  Transmission Date: 20220423
  Serious: Yes (Life-Threatening, Hospitalization, Other)
  Sender: FDA-Public Use
  Company Number: PT-MYLANLABS-2021M1081268

PATIENT
  Age: 89 Year
  Sex: Female

DRUGS (5)
  1. AMIODARONE [Suspect]
     Active Substance: AMIODARONE
     Indication: Atrial fibrillation
     Dosage: UNK
  2. SOTALOL [Concomitant]
     Active Substance: SOTALOL
     Indication: Atrial fibrillation
     Dosage: UNK
     Route: 065
  3. SACUBITRIL\VALSARTAN [Concomitant]
     Active Substance: SACUBITRIL\VALSARTAN
     Indication: Cardiac failure
     Dosage: UNK
     Route: 065
  4. SACUBITRIL\VALSARTAN [Concomitant]
     Active Substance: SACUBITRIL\VALSARTAN
     Indication: Hypertension
  5. RIFAMPIN [Concomitant]
     Active Substance: RIFAMPIN
     Indication: Lymph node tuberculosis
     Dosage: UNK

REACTIONS (10)
  - Myxoedema coma [Recovered/Resolved]
  - Hyponatraemia [Recovered/Resolved]
  - Poor peripheral circulation [Recovered/Resolved]
  - Altered state of consciousness [Recovered/Resolved]
  - Generalised oedema [Recovered/Resolved]
  - Hypothyroidism [Recovered/Resolved]
  - Bradycardia [Recovered/Resolved]
  - Respiratory acidosis [Recovered/Resolved]
  - Acute kidney injury [Recovered/Resolved]
  - Bundle branch block left [Recovered/Resolved]
